FAERS Safety Report 4388444-8 (Version None)
Quarter: 2004Q2

REPORT INFORMATION
  Report Type: 
  Country: None (occurrence: None)
  Receive Date: 20040625
  Receipt Date: 20040615
  Transmission Date: 20050107
  Serious: Yes (Other)
  Sender: FDA-Public Use
  Company Number: GB-JNJFOC-20040603716

PATIENT
  Age: 61 Year
  Sex: Male

DRUGS (5)
  1. REMICADE [Suspect]
     Indication: RHEUMATOID ARTHRITIS
     Dosage: INTRAVENOUS
     Route: 042
     Dates: start: 20020801
  2. METHOTREXATE [Concomitant]
  3. FOLIC ACID [Concomitant]
  4. BENDROFLUAZIDE (BENDROFLUAZIDE) [Concomitant]
  5. VALSARTAN (VALSARTAN) [Concomitant]

REACTIONS (2)
  - LUNG CANCER METASTATIC [None]
  - METASTASES TO SPINE [None]
